FAERS Safety Report 5393074-5 (Version None)
Quarter: 2007Q3

REPORT INFORMATION
  Report Type: 
  Country: None (occurrence: None)
  Receive Date: 20070719
  Receipt Date: 20070704
  Transmission Date: 20080115
  Serious: Yes (Death)
  Sender: FDA-Public Use
  Company Number: 158397ISR

PATIENT

DRUGS (1)
  1. CARBAMAZEPINE [Suspect]

REACTIONS (1)
  - DRUG LEVEL DECREASED [None]
